FAERS Safety Report 25203280 (Version 2)
Quarter: 2025Q2

REPORT INFORMATION
  Report Type: Spontaneous
  Country: US (occurrence: US)
  Receive Date: 20250416
  Receipt Date: 20250607
  Transmission Date: 20250717
  Serious: Yes (Hospitalization, Other)
  Sender: AMNEAL
  Company Number: US-AMNEAL PHARMACEUTICALS-2025-AMRX-01373

PATIENT
  Sex: Male

DRUGS (2)
  1. CREXONT [Suspect]
     Active Substance: CARBIDOPA\LEVODOPA
     Indication: Product used for unknown indication
     Dosage: 2 CAPSULES, (280 MG) 4X/DAY
     Route: 065
  2. CREXONT [Suspect]
     Active Substance: CARBIDOPA\LEVODOPA
     Dosage: 2 CAPSULES, (280 MG) 5X/DAY
     Route: 065

REACTIONS (7)
  - Fall [Unknown]
  - Hallucination [Unknown]
  - Muscle contracture [Unknown]
  - Blood pressure increased [Unknown]
  - Dyskinesia [Unknown]
  - Treatment noncompliance [Unknown]
  - Product substitution issue [Unknown]
